FAERS Safety Report 7220792-6 (Version None)
Quarter: 2011Q1

REPORT INFORMATION
  Report Type: 
  Country: None (occurrence: None)
  Receive Date: 20110112
  Receipt Date: 20110104
  Transmission Date: 20110831
  Serious: Yes (Death, Other)
  Sender: FDA-Public Use
  Company Number: US-BIOGENIDEC-2010BI039900

PATIENT
  Age: 60 Year
  Sex: Male
  Weight: 90 kg

DRUGS (9)
  1. ANTIDEPRESSANT (NOS) [Concomitant]
     Indication: MULTIPLE SCLEROSIS
  2. HALCION [Concomitant]
     Indication: MULTIPLE SCLEROSIS
  3. FLOMAX [Concomitant]
     Indication: MULTIPLE SCLEROSIS
  4. ZOLOFT [Concomitant]
     Indication: MULTIPLE SCLEROSIS
  5. TYSABRI [Suspect]
     Indication: MULTIPLE SCLEROSIS
     Route: 042
     Dates: start: 20080708, end: 20101028
  6. ZOCOR [Concomitant]
     Indication: PROPHYLAXIS
  7. EXTAMAX SUPPLEMENT [Concomitant]
     Dates: start: 20100901
  8. NEURONTIN [Concomitant]
     Indication: MULTIPLE SCLEROSIS
  9. BACLOFEN [Concomitant]
     Indication: MULTIPLE SCLEROSIS

REACTIONS (3)
  - COGNITIVE DISORDER [None]
  - GAIT DISTURBANCE [None]
  - MYOCARDIAL INFARCTION [None]
